FAERS Safety Report 12842835 (Version 2)
Quarter: 2017Q1

REPORT INFORMATION
  Report Type: Spontaneous
  Country: US (occurrence: US)
  Receive Date: 20161013
  Receipt Date: 20170206
  Transmission Date: 20170428
  Serious: No
  Sender: FDA-Public Use
  Company Number: US-PFIZER INC-2016476667

PATIENT
  Age: 72 Year
  Sex: Female
  Weight: 58.6 kg

DRUGS (5)
  1. LEVOTHYROXINE. [Concomitant]
     Active Substance: LEVOTHYROXINE
     Indication: HYPOTHYROIDISM
     Dosage: 100 UG, 1X/DAY
     Route: 048
     Dates: start: 1971
  2. IBRANCE [Suspect]
     Active Substance: PALBOCICLIB
     Dosage: 100MG CAPSULE ONCE A DAY FOR 21 DAYS THEN OFF FOR 7 DAYS.
     Route: 048
     Dates: start: 20161006
  3. IBRANCE [Suspect]
     Active Substance: PALBOCICLIB
     Dosage: 75 MG, DAILY
  4. IBRANCE [Suspect]
     Active Substance: PALBOCICLIB
     Indication: BREAST CANCER
     Dosage: 125MG CAPSULE ONCE A DAY FOR 21 DAYS THEN NOTHING FOR 7 DAYS
     Route: 048
     Dates: start: 201608
  5. LETROZOLE. [Concomitant]
     Active Substance: LETROZOLE
     Dosage: 2.5 MG, 1X/DAY
     Route: 048
     Dates: start: 201606

REACTIONS (2)
  - Full blood count decreased [Recovered/Resolved]
  - Malaise [Unknown]

NARRATIVE: CASE EVENT DATE: 201609
